FAERS Safety Report 9425929 (Version 2)
Quarter: 2014Q1

REPORT INFORMATION
  Report Type: Spontaneous
  Country: US (occurrence: US)
  Receive Date: 20130729
  Receipt Date: 20140110
  Transmission Date: 20141002
  Serious: Yes (Hospitalization)
  Sender: FDA-Public Use
  Company Number: US-B.I. PHARMACEUTICALS,INC./RIDGEFIELD-2013-BI-21981BP

PATIENT
  Sex: Female
  Weight: 65.77 kg

DRUGS (11)
  1. PRADAXA [Suspect]
     Indication: ATRIAL FIBRILLATION
     Dosage: 300 MG
     Route: 048
  2. ATENOLOL [Concomitant]
     Dosage: 25 MG
     Route: 048
  3. SIMVASTATIN [Concomitant]
     Dosage: 210 MG
     Route: 048
  4. JANUVIA [Concomitant]
     Dosage: 50 MG
     Route: 048
  5. BRIMONIDINE [Concomitant]
     Route: 048
  6. PRILOSEC [Concomitant]
     Dosage: 20 MG
     Route: 048
  7. DIGOXIN [Concomitant]
     Dosage: 12.5 MG
     Route: 048
  8. GLIPIZIDE ER [Concomitant]
     Dosage: 10 MG
     Route: 048
  9. POTASSIUM CL ER [Concomitant]
     Dosage: 10 MEQ
     Route: 048
  10. NTG [Concomitant]
     Route: 060
  11. RAMIPRIL [Concomitant]
     Dosage: 5 MG
     Route: 048

REACTIONS (2)
  - Gastrointestinal haemorrhage [Unknown]
  - Anaemia [Unknown]
